FAERS Safety Report 6640719-5 (Version None)
Quarter: 2010Q1

REPORT INFORMATION
  Report Type: 
  Country: None (occurrence: None)
  Receive Date: 20100318
  Receipt Date: 20100305
  Transmission Date: 20100710
  Serious: Yes (Hospitalization, Other)
  Sender: FDA-Public Use
  Company Number: US-ELI_LILLY_AND_COMPANY-US200910001171

PATIENT
  Sex: Male
  Weight: 75.283 kg

DRUGS (11)
  1. BYETTA [Suspect]
     Indication: TYPE 2 DIABETES MELLITUS
     Dosage: UNK, UNKNOWN
     Route: 065
     Dates: start: 20080324, end: 20081010
  2. GLIPIZIDE [Concomitant]
     Indication: TYPE 2 DIABETES MELLITUS
     Dosage: 10 MG, 2/D
  3. METFORMIN HYDROCHLORIDE [Concomitant]
     Indication: TYPE 2 DIABETES MELLITUS
     Dosage: 500 MG, 2/D
  4. LOVASTATIN [Concomitant]
     Indication: BLOOD TRIGLYCERIDES
     Dosage: 20 MG, EACH EVENING
  5. LISINOPRIL HYDROCHLORTHIAZID [Concomitant]
  6. ZYRTEC [Concomitant]
  7. TIZANIDINE HCL [Concomitant]
     Dosage: UNK, EACH EVENING
  8. TRAMADOL HCL [Concomitant]
     Dosage: 100 MG, 3/D
  9. ASPIRIN [Concomitant]
     Dosage: 325 MG, DAILY (1/D)
  10. ALEVE (CAPLET) [Concomitant]
     Dosage: 440 MG, 2/D
  11. CINNAMON [Concomitant]
     Dosage: 1000 MG, DAILY (1/D)

REACTIONS (4)
  - MALIGNANT MELANOMA [None]
  - NEOPLASM MALIGNANT [None]
  - PANCREATITIS ACUTE [None]
  - PANCREATITIS CHRONIC [None]
